FAERS Safety Report 6727377-6 (Version None)
Quarter: 2010Q2

REPORT INFORMATION
  Report Type: 
  Country: None (occurrence: None)
  Receive Date: 20100517
  Receipt Date: 20100505
  Transmission Date: 20101027
  Serious: Yes (Other)
  Sender: FDA-Public Use
  Company Number: PHHY2010DE29482

PATIENT
  Sex: Female

DRUGS (15)
  1. ZOLEDRONATE T29581+ [Suspect]
     Indication: METASTASES TO BONE
     Dosage: 4 MG EVERY 4 WEEKS
     Route: 042
     Dates: start: 20091113, end: 20100401
  2. TAXOL [Concomitant]
     Dosage: 160 MG, UNK
     Dates: start: 20091120, end: 20091120
  3. TAXOL [Concomitant]
     Dosage: 160 MG, UNK
     Dates: start: 20091204, end: 20091204
  4. TAXOL [Concomitant]
     Dosage: 160 MG, UNK
     Dates: start: 20091218, end: 20091218
  5. TAXOL [Concomitant]
     Dosage: 160 MG, UNK
     Dates: start: 20100125, end: 20100125
  6. TAXOL [Concomitant]
     Dosage: 160 MG, UNK
     Dates: start: 20100201, end: 20100201
  7. TAXOL [Concomitant]
     Dosage: 160 MG, UNK
     Dates: start: 20100218, end: 20100218
  8. TAXOL [Concomitant]
     Dosage: 160 MG, UNK
     Dates: start: 20091228, end: 20091228
  9. AVASTIN [Concomitant]
     Dosage: 750 MG, UNK
     Dates: start: 20091120, end: 20091120
  10. AVASTIN [Concomitant]
     Dosage: 750 MG, UNK
     Dates: start: 20091204, end: 20091204
  11. AVASTIN [Concomitant]
     Dosage: 750 MG, UNK
     Dates: start: 20091218, end: 20091218
  12. AVASTIN [Concomitant]
     Dosage: 750 MG, UNK
     Dates: start: 20100201, end: 20100201
  13. AVASTIN [Concomitant]
     Dosage: 750 MG, UNK
     Dates: start: 20100218, end: 20100218
  14. RANITIC [Concomitant]
     Dosage: 300 MG, UNK
     Dates: start: 20091127
  15. PREDNISOLONE [Concomitant]
     Dosage: 8 MG, QW
     Dates: start: 20091127

REACTIONS (1)
  - OSTEONECROSIS OF JAW [None]
